FAERS Safety Report 24312259 (Version 1)
Quarter: 2024Q3

REPORT INFORMATION
  Report Type: Spontaneous
  Country: CN (occurrence: CN)
  Receive Date: 20240912
  Receipt Date: 20240912
  Transmission Date: 20241016
  Serious: Yes (Hospitalization)
  Sender: MERCK
  Company Number: CN-009507513-2409CHN003367

PATIENT
  Age: 75 Year
  Sex: Female
  Weight: 56 kg

DRUGS (2)
  1. KEYTRUDA [Suspect]
     Active Substance: PEMBROLIZUMAB
     Indication: Oesophageal carcinoma
     Dosage: 200 MG, ONCE
     Route: 041
     Dates: start: 20240815, end: 20240815
  2. DENOSUMAB [Suspect]
     Active Substance: DENOSUMAB
     Indication: Oesophageal carcinoma
     Dosage: 60 MG, ONCE
     Route: 058
     Dates: start: 20240815, end: 20240815

REACTIONS (2)
  - Hypocalcaemia [Recovering/Resolving]
  - Product use issue [Unknown]

NARRATIVE: CASE EVENT DATE: 20240815
